FAERS Safety Report 6175185-X (Version None)
Quarter: 2009Q2

REPORT INFORMATION
  Report Type: 
  Country: None (occurrence: None)
  Receive Date: 20090430
  Receipt Date: 20090121
  Transmission Date: 20091009
  Serious: No
  Sender: FDA-Public Use
  Company Number: US-ASTRAZENECA-2009UW01947

PATIENT
  Age: 82 Year
  Sex: Male
  Weight: 113.4 kg

DRUGS (9)
  1. NEXIUM [Suspect]
     Route: 048
     Dates: start: 20090119
  2. AMBIEN [Concomitant]
  3. ZETIA [Concomitant]
  4. ATENOLOL [Concomitant]
  5. INSULIN [Concomitant]
  6. ACTOS [Concomitant]
  7. LISINOPRIL [Concomitant]
     Route: 048
  8. ASPIRIN [Concomitant]
  9. UNSPECIFIED [Concomitant]
     Indication: PROSTATE CANCER

REACTIONS (2)
  - FEELING JITTERY [None]
  - INSOMNIA [None]
